FAERS Safety Report 21003128 (Version 1)
Quarter: 2022Q2

REPORT INFORMATION
  Report Type: Spontaneous
  Country: SE (occurrence: SE)
  Receive Date: 20220624
  Receipt Date: 20220624
  Transmission Date: 20220720
  Serious: Yes (Other)
  Sender: FDA-Public Use
  Company Number: SE-MPA-2022-015855

PATIENT
  Age: 85 Year
  Sex: Male

DRUGS (4)
  1. CIPROFLOXACIN [Suspect]
     Active Substance: CIPROFLOXACIN
     Indication: Urinary tract infection
     Dosage: 1000 MILLIGRAM, DAILY, 500MG 1X2 FOR 12 DAYS
     Route: 048
     Dates: start: 20220523, end: 20220523
  2. Finasteride Accord 5 mg Film-coated tablet [Concomitant]
     Indication: Product used for unknown indication
     Dosage: 5 MILLIGRAM, DAILY
     Route: 048
  3. Hydroxocobalamin Alternova 1 mg / ml Solution for injection [Concomitant]
     Indication: Product used for unknown indication
     Dosage: 1 MILLILITER/ 12 WEEKS
     Route: 030
  4. Alfuzosin STADA 10 mg Depottablett [Concomitant]
     Indication: Product used for unknown indication
     Dosage: 10 MILLIGRAM, DAILY
     Route: 048

REACTIONS (1)
  - Swollen tongue [Recovered/Resolved]

NARRATIVE: CASE EVENT DATE: 20220523
